FAERS Safety Report 25402142 (Version 1)
Quarter: 2025Q2

REPORT INFORMATION
  Report Type: Spontaneous
  Country: CN (occurrence: CN)
  Receive Date: 20250605
  Receipt Date: 20250605
  Transmission Date: 20250716
  Serious: Yes (Other)
  Sender: PFIZER
  Company Number: CN-PFIZER INC-PV202500066617

PATIENT
  Age: 4 Year
  Sex: Male
  Weight: 17 kg

DRUGS (4)
  1. METHOTREXATE SODIUM [Suspect]
     Active Substance: METHOTREXATE SODIUM
     Indication: Acute lymphocytic leukaemia
     Dosage: 0.35 G, 1X/DAY
     Route: 041
     Dates: start: 20250517, end: 20250517
  2. METHOTREXATE SODIUM [Suspect]
     Active Substance: METHOTREXATE SODIUM
     Dosage: 3.15 G, 1X/DAY
     Route: 041
     Dates: start: 20250517, end: 20250517
  3. SODIUM CHLORIDE [Concomitant]
     Active Substance: SODIUM CHLORIDE
     Indication: Acute lymphocytic leukaemia
     Dosage: 50 ML, 1X/DAY
     Route: 041
     Dates: start: 20250517, end: 20250517
  4. DEXTROSE [Concomitant]
     Active Substance: DEXTROSE MONOHYDRATE
     Indication: Acute lymphocytic leukaemia
     Dosage: 500 ML, 1X/DAY
     Route: 041
     Dates: start: 20250517, end: 20250517

REACTIONS (1)
  - Urticaria papular [Recovering/Resolving]

NARRATIVE: CASE EVENT DATE: 20250522
